FAERS Safety Report 7603435-9 (Version None)
Quarter: 2011Q3

REPORT INFORMATION
  Report Type: 
  Country: None (occurrence: None)
  Receive Date: 20110712
  Receipt Date: 20110706
  Transmission Date: 20111222
  Serious: Yes (Death)
  Sender: FDA-Public Use
  Company Number: JP-PFIZER INC-2011150741

PATIENT
  Age: 35 Year
  Sex: Male

DRUGS (3)
  1. ISOBUTYL NITRITE [Interacting]
  2. METHAMPHETAMINE [Concomitant]
     Route: 054
  3. SILDENAFIL CITRATE [Suspect]
     Route: 048

REACTIONS (8)
  - IATROGENIC INJURY [None]
  - PROCEDURAL COMPLICATION [None]
  - DRUG INTERACTION [None]
  - MUCOSAL HAEMORRHAGE [None]
  - CIRCULATORY COLLAPSE [None]
  - LOSS OF CONSCIOUSNESS [None]
  - PULMONARY CONGESTION [None]
  - RIB FRACTURE [None]
